FAERS Safety Report 23685812 (Version 1)
Quarter: 2024Q1

REPORT INFORMATION
  Report Type: Spontaneous
  Country: GB (occurrence: GB)
  Receive Date: 20240329
  Receipt Date: 20240329
  Transmission Date: 20240409
  Serious: Yes (Other)
  Sender: FDA-Public Use
  Company Number: None

PATIENT
  Age: 79 Year
  Sex: Female
  Weight: 73 kg

DRUGS (2)
  1. PREDNISOLONE [Suspect]
     Active Substance: PREDNISOLONE
     Indication: Dermatitis
     Dosage: 30 MG ONCE A DAY IN MORNING.
     Route: 065
     Dates: start: 20240308, end: 20240311
  2. CANDESARTAN [Concomitant]
     Active Substance: CANDESARTAN
     Indication: Blood pressure measurement
     Route: 065

REACTIONS (9)
  - Dizziness [Recovering/Resolving]
  - Headache [Not Recovered/Not Resolved]
  - Visual impairment [Recovering/Resolving]
  - Nausea [Recovering/Resolving]
  - Dysgeusia [Recovering/Resolving]
  - Hot flush [Recovering/Resolving]
  - Euphoric mood [Recovered/Resolved]
  - Depressed mood [Not Recovered/Not Resolved]
  - Cold sweat [Not Recovered/Not Resolved]

NARRATIVE: CASE EVENT DATE: 20240309
